FAERS Safety Report 5001438-4 (Version None)
Quarter: 2006Q2

REPORT INFORMATION
  Report Type: 
  Country: None (occurrence: None)
  Receive Date: 20060512
  Receipt Date: 20050930
  Transmission Date: 20061013
  Serious: Yes (Hospitalization)
  Sender: FDA-Public Use
  Company Number: US-MERCK-0510USA01322

PATIENT
  Age: 47 Year
  Sex: Male
  Weight: 12 kg

DRUGS (1)
  1. VIOXX [Suspect]
     Indication: BACK PAIN
     Route: 048
     Dates: start: 19990501, end: 20040930

REACTIONS (16)
  - ANAEMIA [None]
  - CARDIAC DISORDER [None]
  - CARDIAC FAILURE CONGESTIVE [None]
  - CARDIOVASCULAR DISORDER [None]
  - CEREBROVASCULAR ACCIDENT [None]
  - CHEST PAIN [None]
  - CHOLELITHIASIS [None]
  - CONTUSION [None]
  - CORONARY ARTERY DISEASE [None]
  - COUGH [None]
  - DIABETIC NEUROPATHY [None]
  - DYSPNOEA [None]
  - OEDEMA PERIPHERAL [None]
  - PERIPHERAL EMBOLISM [None]
  - SILENT MYOCARDIAL INFARCTION [None]
  - VENTRICULAR HYPERTROPHY [None]
